FAERS Safety Report 24853247 (Version 1)
Quarter: 2025Q1

REPORT INFORMATION
  Report Type: Spontaneous
  Country: AU (occurrence: AU)
  Receive Date: 20250117
  Receipt Date: 20250117
  Transmission Date: 20250409
  Serious: Yes (Other)
  Sender: CSL BEHRING
  Company Number: AU-BEH-2025191620

PATIENT
  Sex: Male
  Weight: 104.31 kg

DRUGS (2)
  1. HIZENTRA [Suspect]
     Active Substance: HUMAN IMMUNOGLOBULIN G
     Indication: Bruton^s agammaglobulinaemia
     Route: 058
     Dates: start: 2014, end: 2024
  2. HIZENTRA [Suspect]
     Active Substance: HUMAN IMMUNOGLOBULIN G
     Route: 065

REACTIONS (7)
  - Deafness [Unknown]
  - Ear discomfort [Unknown]
  - Dry skin [Unknown]
  - Scab [Unknown]
  - Incorrect drug administration rate [Unknown]
  - Arthritis [Unknown]
  - Stress [Unknown]

NARRATIVE: CASE EVENT DATE: 20240601
